FAERS Safety Report 10977628 (Version 1)
Quarter: 2015Q1

REPORT INFORMATION
  Report Type: Spontaneous
  Country: CH (occurrence: None)
  Receive Date: 20150331
  Receipt Date: 20150331
  Transmission Date: 20150721
  Serious: Yes (Other)
  Sender: FDA-Public Use
  Company Number: 20150186

PATIENT
  Age: 23 Year
  Sex: Female
  Weight: 57 kg

DRUGS (1)
  1. FERINJECT [Suspect]
     Active Substance: FERRIC CARBOXYMALTOSE
     Indication: HAEMOGLOBIN DECREASED
     Dosage: 2 AMPOULES IN ONE APPLICATION.
     Route: 042
     Dates: start: 20150306

REACTIONS (9)
  - Asthenia [None]
  - Bradycardia [None]
  - Infusion related reaction [None]
  - Application site discolouration [None]
  - Syncope [None]
  - Pallor [None]
  - Oxygen saturation decreased [None]
  - Hypotension [None]
  - Application site burn [None]

NARRATIVE: CASE EVENT DATE: 201503
